FAERS Safety Report 17740251 (Version 1)
Quarter: 2020Q2

REPORT INFORMATION
  Report Type: Spontaneous
  Country: US (occurrence: US)
  Receive Date: 20200504
  Receipt Date: 20200504
  Transmission Date: 20200714
  Serious: No
  Sender: FDA-Public Use
  Company Number: US-PFIZER INC-2020176001

PATIENT
  Sex: Female

DRUGS (4)
  1. IMVEXXY [Suspect]
     Active Substance: ESTRADIOL
     Dosage: UNK, 1X/DAY (ONCE DAILY FOR 7 DAYS THEN TWICE WEEKLY)
     Dates: end: 202003
  2. PREMARIN [Suspect]
     Active Substance: ESTROGENS, CONJUGATED
     Dosage: UNK
  3. IMVEXXY [Suspect]
     Active Substance: ESTRADIOL
     Dosage: UNK, 2X/WEEK (ONCE DAILY FOR 7 DAYS THEN TWICE WEEKLY)
     Dates: end: 202003
  4. IMVEXXY [Suspect]
     Active Substance: ESTRADIOL
     Dosage: UNK, 2X/WEEK
     Route: 067
     Dates: start: 202003

REACTIONS (2)
  - Hot flush [Unknown]
  - Headache [Unknown]

NARRATIVE: CASE EVENT DATE: 202003
